FAERS Safety Report 13893409 (Version 1)
Quarter: 2017Q3

REPORT INFORMATION
  Report Type: Spontaneous
  Country: US (occurrence: US)
  Receive Date: 20170822
  Receipt Date: 20170822
  Transmission Date: 20171127
  Serious: Yes (Life-Threatening, Hospitalization)
  Sender: FDA-Public Use
  Company Number: US-ROCHE-716414

PATIENT
  Age: 65 Year
  Sex: Female
  Weight: 70.7 kg

DRUGS (17)
  1. ACTEMRA [Suspect]
     Active Substance: TOCILIZUMAB
     Indication: RHEUMATOID ARTHRITIS
     Dosage: FORM: INFUSION; DOSE LEVEL: 4 MG/KG
     Route: 042
     Dates: start: 20100401, end: 20100401
  2. ACTEMRA [Suspect]
     Active Substance: TOCILIZUMAB
     Dosage: DOSE LEVEL: 4 MG/KG
     Route: 042
     Dates: start: 20100510, end: 20100510
  3. ACTEMRA [Suspect]
     Active Substance: TOCILIZUMAB
     Dosage: DOSE LEVEL: 8 MG/KG
     Route: 042
  4. ASPIRIN. [Concomitant]
     Active Substance: ASPIRIN
     Route: 048
  5. CALCIUM CITRATE [Concomitant]
     Active Substance: CALCIUM CITRATE
     Dosage: FORM: PILLS
     Route: 048
  6. PREDNISONE. [Concomitant]
     Active Substance: PREDNISONE
     Indication: RHEUMATOID ARTHRITIS
     Route: 048
  7. METOPROLOL. [Concomitant]
     Active Substance: METOPROLOL
     Dosage: 25 MG EVERY MORNING AND 25 MG EVERY EPISODE OF TACHYCARDIA
     Route: 065
  8. PROTONIX [Concomitant]
     Active Substance: PANTOPRAZOLE SODIUM
     Route: 048
  9. INSULIN ASPART [Concomitant]
     Active Substance: INSULIN ASPART
     Indication: DIABETES MELLITUS
     Dosage: PUMP
     Route: 065
  10. TOPROL XL [Concomitant]
     Active Substance: METOPROLOL SUCCINATE
     Route: 048
  11. PRAVASTATIN. [Concomitant]
     Active Substance: PRAVASTATIN
     Dosage: FORM: PILL
     Route: 048
  12. ACTEMRA [Suspect]
     Active Substance: TOCILIZUMAB
     Dosage: DOSE LEVEL: 4 MG/KG
     Route: 042
     Dates: start: 20100602, end: 20100602
  13. POTASSIUM CHLORIDE. [Concomitant]
     Active Substance: POTASSIUM CHLORIDE
     Route: 048
  14. DIGOXIN. [Concomitant]
     Active Substance: DIGOXIN
     Route: 048
  15. ZETIA [Concomitant]
     Active Substance: EZETIMIBE
     Dosage: FORM: PILL
     Route: 048
  16. FLECAINIDE [Concomitant]
     Active Substance: FLECAINIDE
     Indication: ATRIAL FIBRILLATION
     Route: 048
  17. PREDNISONE. [Concomitant]
     Active Substance: PREDNISONE
     Route: 048

REACTIONS (6)
  - Hypertension [Recovered/Resolved]
  - Heart rate increased [Recovered/Resolved]
  - Asthenia [Recovered/Resolved]
  - Fatigue [Recovered/Resolved]
  - Diverticulitis [Unknown]
  - Malaise [Recovered/Resolved]

NARRATIVE: CASE EVENT DATE: 20100401
